FAERS Safety Report 18784617 (Version 3)
Quarter: 2021Q2

REPORT INFORMATION
  Report Type: Other
  Country: US (occurrence: US)
  Receive Date: 20210126
  Receipt Date: 20210402
  Transmission Date: 20210717
  Serious: Yes (Other)
  Sender: FDA-Public Use
  Company Number: US-INTERCEPT-PM2020001270

PATIENT
  Age: 49 Year
  Sex: Female

DRUGS (14)
  1. ROXICODONE [Concomitant]
     Active Substance: OXYCODONE HYDROCHLORIDE
     Indication: PAIN
     Dosage: 5 MILLIGRAM, TID
  2. TRICOR [Concomitant]
     Active Substance: FENOFIBRATE
     Indication: PRIMARY BILIARY CHOLANGITIS
     Dosage: 145 MILLIGRAM, QD
     Route: 048
     Dates: start: 20201214
  3. LIDODERM [Concomitant]
     Active Substance: LIDOCAINE
     Route: 061
  4. PENNSAID [Concomitant]
     Active Substance: DICLOFENAC SODIUM
  5. DEPO?MEDROL [Concomitant]
     Active Substance: METHYLPREDNISOLONE ACETATE
     Dosage: UNK, FOR ORTHO USE
  6. SENSORCAINE MPF [Concomitant]
     Active Substance: BUPIVACAINE HYDROCHLORIDE
     Dosage: UNK, FOR ORTHO USE
  7. SODIUM FLUORIDE. [Concomitant]
     Active Substance: SODIUM FLUORIDE
  8. OCALIVA [Suspect]
     Active Substance: OBETICHOLIC ACID
     Indication: PRIMARY BILIARY CHOLANGITIS
     Dosage: 5 MILLIGRAM, QD
     Route: 048
     Dates: start: 20181017
  9. MOTRIN [Concomitant]
     Active Substance: IBUPROFEN
     Indication: PAIN
     Dosage: 800 MILLIGRAM, TID
     Route: 048
  10. URSODIOL. [Concomitant]
     Active Substance: URSODIOL
     Indication: PRIMARY BILIARY CHOLANGITIS
     Dosage: 500 MILLIGRAM, BID
     Route: 048
     Dates: start: 20171024
  11. URSODIOL. [Concomitant]
     Active Substance: URSODIOL
     Dosage: 500 MILLIGRAM, TID
     Route: 048
  12. VITAMIN D3 [Concomitant]
     Active Substance: CHOLECALCIFEROL
  13. VITAMINS NOS [Concomitant]
     Active Substance: VITAMINS
     Dosage: 1 DOSAGE FORM, QD
  14. SYNTHROID [Concomitant]
     Active Substance: LEVOTHYROXINE SODIUM
     Dosage: 137 MICROGRAM, QD, 1 EXTRA TABLET WEEKLY
     Route: 048

REACTIONS (21)
  - Hepatic fibrosis [Unknown]
  - Cholecystitis acute [Unknown]
  - Cholelithiasis [Recovered/Resolved]
  - Product dose omission issue [Recovered/Resolved]
  - Cholangitis [Unknown]
  - Hepatic steatosis [Unknown]
  - Bile duct stone [Unknown]
  - Hepatitis [Unknown]
  - Hepatic enzyme abnormal [Unknown]
  - Oedema peripheral [Unknown]
  - Pruritus [Recovered/Resolved]
  - Cholecystectomy [Unknown]
  - Portal tract inflammation [Unknown]
  - Weight increased [Unknown]
  - Cholecystitis chronic [Unknown]
  - Joint swelling [Recovered/Resolved]
  - Blood thyroid stimulating hormone abnormal [Unknown]
  - Blood alkaline phosphatase abnormal [Recovered/Resolved]
  - Peripheral swelling [Recovered/Resolved]
  - Arthralgia [Unknown]
  - Cholestatic liver injury [Unknown]

NARRATIVE: CASE EVENT DATE: 20200806
